FAERS Safety Report 5735608-4 (Version None)
Quarter: 2008Q2

REPORT INFORMATION
  Report Type: 
  Country: None (occurrence: None)
  Receive Date: 20080512
  Receipt Date: 20080430
  Transmission Date: 20081010
  Serious: Yes (Other)
  Sender: FDA-Public Use
  Company Number: US-PFIZER INC-2008038000

PATIENT
  Sex: Male

DRUGS (7)
  1. NEURONTIN [Suspect]
     Route: 048
  2. BEXTRA [Suspect]
     Route: 048
  3. REMERON [Suspect]
     Route: 048
  4. EFFEXOR XR [Suspect]
  5. DURAGESIC-100 [Suspect]
     Indication: PAIN
     Route: 062
  6. ACTIQ [Suspect]
     Indication: BACK PAIN
  7. ACTIQ [Suspect]
     Indication: PAIN IN EXTREMITY

REACTIONS (8)
  - DRUG DEPENDENCE [None]
  - DRUG WITHDRAWAL HEADACHE [None]
  - DRUG WITHDRAWAL SYNDROME [None]
  - ERECTILE DYSFUNCTION [None]
  - TOOTH DISORDER [None]
  - TOOTH EXTRACTION [None]
  - TOOTHACHE [None]
  - TREMOR [None]
